FAERS Safety Report 14070276 (Version 13)
Quarter: 2018Q2

REPORT INFORMATION
  Report Type: Report from Study
  Country: US (occurrence: US)
  Receive Date: 20171010
  Receipt Date: 20180410
  Transmission Date: 20180711
  Serious: Yes (Other)
  Sender: FDA-Public Use
  Company Number: US-JNJFOC-20171008849

PATIENT
  Age: 76 Year
  Sex: Male

DRUGS (8)
  1. IRON [Concomitant]
     Active Substance: IRON
  2. CINNAMON. [Concomitant]
     Active Substance: CINNAMON
  3. FOLIC ACID. [Concomitant]
     Active Substance: FOLIC ACID
  4. AMOXICILLIN. [Concomitant]
     Active Substance: AMOXICILLIN
  5. IMBRUVICA [Suspect]
     Active Substance: IBRUTINIB
     Indication: WALDENSTROM^S MACROGLOBULINAEMIA
     Route: 048
  6. IMBRUVICA [Suspect]
     Active Substance: IBRUTINIB
     Indication: WALDENSTROM^S MACROGLOBULINAEMIA
     Route: 048
     Dates: start: 20170927
  7. LISINOPRIL. [Concomitant]
     Active Substance: LISINOPRIL
  8. VALACYCLOVIR HCL [Concomitant]
     Active Substance: VALACYCLOVIR HYDROCHLORIDE

REACTIONS (17)
  - Haemoglobin decreased [Not Recovered/Not Resolved]
  - Blood count abnormal [Not Recovered/Not Resolved]
  - Heart rate decreased [Unknown]
  - Dysphonia [Not Recovered/Not Resolved]
  - Hypoacusis [Unknown]
  - Contusion [Unknown]
  - Arrhythmia [Unknown]
  - Ear infection [Not Recovered/Not Resolved]
  - Incorrect dose administered [Unknown]
  - Bleeding time prolonged [Unknown]
  - Increased tendency to bruise [Recovering/Resolving]
  - Fatigue [Recovering/Resolving]
  - Vision blurred [Recovering/Resolving]
  - Heart rate irregular [Unknown]
  - Dizziness [Recovered/Resolved]
  - Off label use [Unknown]
  - Wound [Unknown]

NARRATIVE: CASE EVENT DATE: 2017
